FAERS Safety Report 23565009 (Version 1)
Quarter: 2024Q1

REPORT INFORMATION
  Report Type: Spontaneous
  Country: US (occurrence: US)
  Receive Date: 20240226
  Receipt Date: 20240226
  Transmission Date: 20240410
  Serious: Yes (Hospitalization)
  Sender: FDA-Public Use
  Company Number: US-AMNEAL PHARMACEUTICALS-2024-AMRX-00571

PATIENT
  Sex: Female
  Weight: 11.701 kg

DRUGS (2)
  1. VIGABATRIN [Suspect]
     Active Substance: VIGABATRIN
     Indication: Propionic acidaemia
     Dosage: 700 MILLIGRAM, 2X/DAY
     Route: 048
  2. VIGABATRIN [Suspect]
     Active Substance: VIGABATRIN
     Indication: Infantile spasms

REACTIONS (1)
  - Hospitalisation [Unknown]
